FAERS Safety Report 12454317 (Version 2)
Quarter: 2016Q2

REPORT INFORMATION
  Report Type: Spontaneous
  Country: IE (occurrence: IE)
  Receive Date: 20160610
  Receipt Date: 20160617
  Transmission Date: 20160815
  Serious: Yes (Hospitalization)
  Sender: FDA-Public Use
  Company Number: IE-PFIZER INC-2016275835

PATIENT
  Age: 34 Year
  Sex: Male

DRUGS (1)
  1. SUTENT [Suspect]
     Active Substance: SUNITINIB MALATE
     Indication: METASTATIC RENAL CELL CARCINOMA
     Dosage: 50 MG, UNK

REACTIONS (7)
  - Arthralgia [Recovering/Resolving]
  - Diarrhoea [Unknown]
  - Hypertension [Not Recovered/Not Resolved]
  - Yellow skin [Unknown]
  - Palmar-plantar erythrodysaesthesia syndrome [Recovering/Resolving]
  - Pain [Recovering/Resolving]
  - Stomatitis [Recovered/Resolved]
